FAERS Safety Report 10218636 (Version 1)
Quarter: 2014Q2

REPORT INFORMATION
  Report Type: Spontaneous
  Country: US (occurrence: None)
  Receive Date: 20140604
  Receipt Date: 20140604
  Transmission Date: 20141212
  Serious: Yes (Life-Threatening, Hospitalization)
  Sender: FDA-Public Use
  Company Number: None

PATIENT
  Age: 47 Year
  Sex: Female
  Weight: 91 kg

DRUGS (2)
  1. GAMMAGARD LIQUID [Suspect]
     Indication: MYASTHENIA GRAVIS
     Dosage: 45GM 1 DAY EVERY WEEK INTRAVENOUS
     Route: 042
     Dates: start: 20131106, end: 20140428
  2. VENOFER [Concomitant]

REACTIONS (1)
  - Thrombosis [None]
